FAERS Safety Report 11304049 (Version 1)
Quarter: 2015Q3

REPORT INFORMATION
  Report Type: Spontaneous
  Country: US (occurrence: US)
  Receive Date: 20150723
  Receipt Date: 20150723
  Transmission Date: 20151125
  Serious: No
  Sender: FDA-Public Use
  Company Number: US-JNJFOC-20150413627

PATIENT
  Sex: Male

DRUGS (4)
  1. XL281 [Interacting]
     Active Substance: INVESTIGATIONAL PRODUCT
     Indication: NEOPLASM
     Dosage: FORMULATION: FORMULATED CAPSULE (FC)??DOSE-ESCALATION WAS DONE
     Route: 048
  2. FAMOTIDINE. [Suspect]
     Active Substance: FAMOTIDINE
     Indication: PRODUCT USED FOR UNKNOWN INDICATION
     Dosage: SINGLE DOSE
     Route: 065
  3. XL281 [Interacting]
     Active Substance: INVESTIGATIONAL PRODUCT
     Indication: NEOPLASM
     Dosage: FORMULATION: DRUG IN CAPSULE (DIC), ONCE DAILY IN 28-DAY CYCLES, DOSE-ESCALATION WAS DONE
     Route: 048
  4. FAMOTIDINE. [Suspect]
     Active Substance: FAMOTIDINE
     Route: 065

REACTIONS (20)
  - Abdominal pain [Unknown]
  - Pain in extremity [Unknown]
  - Pain [Unknown]
  - Dehydration [Unknown]
  - Drug interaction [Unknown]
  - Diarrhoea [Unknown]
  - Vomiting [Unknown]
  - Nausea [Unknown]
  - Anaemia [Unknown]
  - Fatigue [Unknown]
  - Back pain [Unknown]
  - Constipation [Unknown]
  - Asthenia [Unknown]
  - Arthralgia [Unknown]
  - Headache [Unknown]
  - Urinary tract infection [Unknown]
  - Decreased appetite [Unknown]
  - Hyperglycaemia [Unknown]
  - Hyponatraemia [Unknown]
  - Dyspnoea [Unknown]
